FAERS Safety Report 25346776 (Version 1)
Quarter: 2025Q2

REPORT INFORMATION
  Report Type: Spontaneous
  Country: GR (occurrence: GR)
  Receive Date: 20250522
  Receipt Date: 20250522
  Transmission Date: 20250717
  Serious: Yes (Hospitalization, Other)
  Sender: MYLAN
  Company Number: GR-MYLANLABS-2025M1042279

PATIENT
  Age: 76 Year
  Sex: Male

DRUGS (1)
  1. XANAX [Suspect]
     Active Substance: ALPRAZOLAM
     Indication: Product used for unknown indication

REACTIONS (4)
  - Parkinson^s disease [Unknown]
  - Drug dependence [Unknown]
  - Tremor [Unknown]
  - Withdrawal syndrome [Unknown]
